FAERS Safety Report 9291238 (Version 2)
Quarter: 2013Q3

REPORT INFORMATION
  Report Type: Spontaneous
  Country: US (occurrence: US)
  Receive Date: 20130515
  Receipt Date: 20130820
  Transmission Date: 20140515
  Serious: No
  Sender: FDA-Public Use
  Company Number: US-009507513-1305USA009395

PATIENT
  Sex: Female
  Weight: 52.61 kg

DRUGS (6)
  1. CLARITIN REDITABS 12HR [Suspect]
     Indication: RHINORRHOEA
     Dosage: 5 MG, Q12H
     Route: 048
     Dates: start: 20130401, end: 20130403
  2. CLARITIN REDITABS 12HR [Suspect]
     Indication: SNEEZING
  3. CARDIZEM CD [Concomitant]
     Indication: PRODUCT USED FOR UNKNOWN INDICATION
     Dosage: UNK, UNKNOWN
  4. DIOVAN [Concomitant]
     Indication: PRODUCT USED FOR UNKNOWN INDICATION
     Dosage: UNK, UNKNOWN
  5. CALTRATE + D [Concomitant]
     Indication: PRODUCT USED FOR UNKNOWN INDICATION
     Dosage: UNK, UNKNOWN
  6. PRILOSEC [Concomitant]
     Indication: PRODUCT USED FOR UNKNOWN INDICATION
     Dosage: UNK, UNKNOWN

REACTIONS (2)
  - Tongue blistering [Recovering/Resolving]
  - Oral mucosal blistering [Recovering/Resolving]
